FAERS Safety Report 5913389-9 (Version None)
Quarter: 2008Q4

REPORT INFORMATION
  Report Type: 
  Country: None (occurrence: None)
  Receive Date: 20081009
  Receipt Date: 20081003
  Transmission Date: 20090506
  Serious: Yes (Other)
  Sender: FDA-Public Use
  Company Number: PHEH2008US08823

PATIENT
  Age: 56 Year
  Sex: Female

DRUGS (13)
  1. SANDOSTATIN LAR [Suspect]
     Indication: CARCINOID TUMOUR
     Dosage: 20 MG, UNK
     Route: 030
     Dates: start: 20080925
  2. INSULIN [Concomitant]
  3. RANITIDINE [Concomitant]
  4. FUROSEMIDE [Concomitant]
  5. GOLYTELY [Concomitant]
  6. FEXOFENADINE [Concomitant]
  7. PRAVASTATIN [Concomitant]
  8. LEVOTHYROXINE SODIUM [Concomitant]
  9. PREDNISONE TAB [Concomitant]
  10. TACROLIMUS [Concomitant]
  11. METOCLOPRAMIDE [Concomitant]
  12. PIOGLITAZONE [Concomitant]
  13. METOXYPHLINE [Concomitant]

REACTIONS (5)
  - CHILLS [None]
  - DEPRESSION [None]
  - HYPERHIDROSIS [None]
  - IRRITABILITY [None]
  - SKIN WARM [None]
